FAERS Safety Report 15624112 (Version 15)
Quarter: 2022Q1

REPORT INFORMATION
  Report Type: Report from Study
  Country: JP (occurrence: JP)
  Receive Date: 20181116
  Receipt Date: 20220329
  Transmission Date: 20220423
  Serious: Yes (Hospitalization)
  Sender: FDA-Public Use
  Company Number: JP-ABBVIE-18S-087-2444091-00

PATIENT
  Age: 75 Year
  Sex: Female
  Weight: 42 kg

DRUGS (9)
  1. CARBIDOPA\LEVODOPA [Suspect]
     Active Substance: CARBIDOPA\LEVODOPA
     Indication: Parkinson^s disease
     Route: 050
     Dates: start: 20180724, end: 20190722
  2. CARBIDOPA\LEVODOPA [Suspect]
     Active Substance: CARBIDOPA\LEVODOPA
     Dosage: MD: 4 ML, CD: 4.2 ML/HR X 16 HRS
     Route: 050
     Dates: start: 20190723, end: 20191004
  3. CARBIDOPA\LEVODOPA [Suspect]
     Active Substance: CARBIDOPA\LEVODOPA
     Dosage: MD: 4 ML?CD: 4.3 ML/HR X 16 HRS?ED: 1.0 ML/UNIT X 4
     Route: 050
     Dates: start: 20191005
  4. TELMISARTAN [Concomitant]
     Active Substance: TELMISARTAN
     Indication: Product used for unknown indication
     Route: 048
  5. ELDECALCITOL [Concomitant]
     Active Substance: ELDECALCITOL
     Indication: Product used for unknown indication
     Route: 048
  6. ESOMEPRAZOLE MAGNESIUM [Concomitant]
     Active Substance: ESOMEPRAZOLE MAGNESIUM
     Indication: Product used for unknown indication
     Route: 048
  7. NIFEDIPINE [Concomitant]
     Active Substance: NIFEDIPINE
     Indication: Product used for unknown indication
     Route: 048
  8. ISOSORBIDE MONONITRATE [Concomitant]
     Active Substance: ISOSORBIDE MONONITRATE
     Indication: Product used for unknown indication
     Route: 048
  9. DABIGATRAN ETEXILATE [Concomitant]
     Active Substance: DABIGATRAN ETEXILATE
     Indication: Product used for unknown indication
     Route: 048

REACTIONS (10)
  - Bradycardia [Recovered/Resolved]
  - Embedded device [Recovered/Resolved]
  - Fall [Unknown]
  - Bezoar [Recovered/Resolved]
  - Wrong technique in device usage process [Unknown]
  - Mobility decreased [Unknown]
  - Rib fracture [Unknown]
  - Fall [Unknown]
  - Somnolence [Recovering/Resolving]
  - Posture abnormal [Unknown]

NARRATIVE: CASE EVENT DATE: 20180725
